FAERS Safety Report 8349012-6 (Version None)
Quarter: 2012Q2

REPORT INFORMATION
  Report Type: 
  Country: None (occurrence: None)
  Receive Date: 20120510
  Receipt Date: 20120430
  Transmission Date: 20120825
  Serious: Yes (Hospitalization)
  Sender: FDA-Public Use
  Company Number: DK-JNJFOC-20100300983

PATIENT
  Age: 53 Year
  Sex: Female
  Weight: 97 kg

DRUGS (5)
  1. AZATHIOPRINE [Suspect]
     Indication: COLITIS ULCERATIVE
     Route: 048
     Dates: start: 20081127, end: 20100226
  2. REMICADE [Suspect]
     Indication: COLITIS ULCERATIVE
     Route: 042
     Dates: start: 20091217
  3. REMICADE [Suspect]
     Route: 042
     Dates: start: 20100510, end: 20100510
  4. ASACOL [Concomitant]
     Indication: COLITIS ULCERATIVE
     Route: 048
     Dates: start: 20080430
  5. PREDNISOLONE [Concomitant]

REACTIONS (5)
  - PYREXIA [None]
  - CHEST DISCOMFORT [None]
  - COLITIS ULCERATIVE [None]
  - INFUSION RELATED REACTION [None]
  - ANAPHYLACTIC SHOCK [None]
